FAERS Safety Report 7949970-5 (Version None)
Quarter: 2011Q4

REPORT INFORMATION
  Report Type: 
  Country: None (occurrence: None)
  Receive Date: 20111130
  Receipt Date: 20111119
  Transmission Date: 20120403
  Serious: Yes (Other)
  Sender: FDA-Public Use
  Company Number: US-BRISTOL-MYERS SQUIBB COMPANY-16242018

PATIENT

DRUGS (1)
  1. COUMADIN [Suspect]

REACTIONS (4)
  - WEIGHT DECREASED [None]
  - NAUSEA [None]
  - PANCREATIC ENZYMES INCREASED [None]
  - DECREASED APPETITE [None]
